FAERS Safety Report 11910339 (Version 1)
Quarter: 2016Q1

REPORT INFORMATION
  Report Type: Spontaneous
  Country: US (occurrence: None)
  Receive Date: 20160111
  Receipt Date: 20160111
  Transmission Date: 20160526
  Serious: No
  Sender: FDA-Public Use
  Company Number: None

PATIENT
  Age: 39 Year
  Sex: Female

DRUGS (1)
  1. XELODA [Suspect]
     Active Substance: CAPECITABINE
     Dosage: STRENGTH: 500

REACTIONS (3)
  - Palmar erythema [None]
  - Nausea [None]
  - Dyspepsia [None]

NARRATIVE: CASE EVENT DATE: 20160107
